FAERS Safety Report 10117341 (Version 2)
Quarter: 2014Q2

REPORT INFORMATION
  Report Type: Spontaneous
  Country: US (occurrence: US)
  Receive Date: 20140425
  Receipt Date: 20140425
  Transmission Date: 20141212
  Serious: Yes (Hospitalization, Other)
  Sender: FDA-Public Use
  Company Number: US-BMSGILMSD-2012-0060645

PATIENT
  Age: 46 Year
  Sex: Male

DRUGS (10)
  1. ATRIPLA [Suspect]
     Indication: HIV INFECTION
     Dosage: UNK
     Dates: start: 20101021
  2. TRUVADA [Concomitant]
     Dosage: UNK
     Dates: start: 20110915
  3. ISENTRESS [Concomitant]
     Dosage: UNK
     Dates: start: 20110915
  4. ALPRAZOLAM [Concomitant]
     Dosage: UNK
     Dates: start: 20110810
  5. AMBIEN [Concomitant]
     Dosage: UNK
     Dates: start: 20110810
  6. AZELEX [Concomitant]
     Dosage: UNK
     Dates: start: 20110921
  7. AZITHROMYCIN [Concomitant]
     Dosage: UNK
     Dates: start: 20111202
  8. AZITHROMYCIN [Concomitant]
     Dosage: UNK
     Dates: start: 20121129
  9. TEMAZEPAM [Concomitant]
     Dosage: UNK
     Dates: start: 20110915
  10. SERTRALINE [Concomitant]
     Dosage: UNK
     Dates: start: 20110811

REACTIONS (1)
  - Suicide attempt [Recovered/Resolved]
